FAERS Safety Report 13833638 (Version 8)
Quarter: 2019Q1

REPORT INFORMATION
  Report Type: Report from Study
  Country: CA (occurrence: CA)
  Receive Date: 20170804
  Receipt Date: 20190121
  Transmission Date: 20190417
  Serious: Yes (Hospitalization)
  Sender: FDA-Public Use
  Company Number: CA-OTSUKA-2017_008104

PATIENT
  Age: 30 Year
  Sex: Female
  Weight: 88.43 kg

DRUGS (3)
  1. ARIPIPRAZOLE. [Suspect]
     Active Substance: ARIPIPRAZOLE
     Indication: SCHIZOPHRENIA
     Dosage: 400 MG, Q4WEEKS
     Route: 030
     Dates: start: 20170209
  2. LITHIUM. [Concomitant]
     Active Substance: LITHIUM
     Indication: DEPRESSION
     Dosage: 450 MG, QD
     Route: 048
     Dates: start: 201208
  3. CIPRALEX [Concomitant]
     Active Substance: ESCITALOPRAM OXALATE
     Indication: DEPRESSION
     Dosage: 20 MG, QD
     Route: 048
     Dates: start: 201608

REACTIONS (8)
  - Inability to afford medication [Unknown]
  - Product dose omission [Unknown]
  - Suicidal ideation [Recovered/Resolved]
  - Insurance issue [Unknown]
  - Inappropriate schedule of product administration [Unknown]
  - Adverse event [Unknown]
  - Schizoaffective disorder [Recovered/Resolved]
  - Wrong schedule [Unknown]

NARRATIVE: CASE EVENT DATE: 20171108
